FAERS Safety Report 15644394 (Version 1)
Quarter: 2018Q4

REPORT INFORMATION
  Report Type: Spontaneous
  Country: US (occurrence: US)
  Receive Date: 20181121
  Receipt Date: 20181121
  Transmission Date: 20190205
  Serious: No
  Sender: FDA-Public Use
  Company Number: None

PATIENT
  Age: 21 Year
  Sex: Female
  Weight: 54 kg

DRUGS (6)
  1. FIORICET [Concomitant]
     Active Substance: ACETAMINOPHEN\BUTALBITAL\CAFFEINE
  2. ZOMIG [Concomitant]
     Active Substance: ZOLMITRIPTAN
  3. AIMOVIG [Suspect]
     Active Substance: ERENUMAB-AOOE
     Indication: MIGRAINE
     Dosage: ?          QUANTITY:1 INJECTION(S);OTHER FREQUENCY:30 DAYS;?
     Route: 030
     Dates: start: 20180916, end: 20181115
  4. MELATONIN [Concomitant]
     Active Substance: MELATONIN
  5. KEPPRA [Concomitant]
     Active Substance: LEVETIRACETAM
  6. DEPO-PROVERA [Concomitant]
     Active Substance: MEDROXYPROGESTERONE ACETATE

REACTIONS (12)
  - Decreased appetite [None]
  - Heart rate increased [None]
  - Myalgia [None]
  - Muscle spasms [None]
  - Hypertension [None]
  - Nausea [None]
  - Bone pain [None]
  - Vertigo [None]
  - Insomnia [None]
  - Alopecia [None]
  - Fatigue [None]
  - Migraine [None]

NARRATIVE: CASE EVENT DATE: 20181001
